FAERS Safety Report 8917841 (Version 2)
Quarter: 2013Q2

REPORT INFORMATION
  Report Type: Report from Study
  Country: BR (occurrence: BR)
  Receive Date: 20121120
  Receipt Date: 20130414
  Transmission Date: 20140414
  Serious: Yes (Other)
  Sender: FDA-Public Use
  Company Number: BR-US-EMD SERONO, INC.-7173374

PATIENT
  Sex: Female

DRUGS (1)
  1. REBIF [Suspect]
     Indication: RELAPSING-REMITTING MULTIPLE SCLEROSIS
     Dates: start: 201101

REACTIONS (6)
  - Cholelithiasis [Unknown]
  - Urinary incontinence [Unknown]
  - Pollakiuria [Recovering/Resolving]
  - Activities of daily living impaired [Unknown]
  - Induration [Unknown]
  - Depression [Unknown]
